FAERS Safety Report 7458210-5 (Version None)
Quarter: 2011Q1

REPORT INFORMATION
  Report Type: 
  Country: None (occurrence: None)
  Receive Date: 20110302
  Receipt Date: 20100709
  Transmission Date: 20110831
  Serious: No
  Sender: FDA-Public Use
  Company Number: 163-21880-08041014

PATIENT
  Age: 59 Year
  Sex: Female

DRUGS (3)
  1. REVLIMID [Suspect]
     Indication: LYMPHOPROLIFERATIVE DISORDER
     Dosage: 5 MG, 1 IN 1 D, PO 5 MG, DAILY, PO
     Route: 048
     Dates: start: 20060223, end: 20070901
  2. REVLIMID [Suspect]
     Indication: LYMPHOPROLIFERATIVE DISORDER
     Dosage: 5 MG, 1 IN 1 D, PO 5 MG, DAILY, PO
     Route: 048
     Dates: start: 20080601, end: 20091101
  3. REVLIMID [Suspect]
     Indication: LYMPHOPROLIFERATIVE DISORDER
     Dosage: 5 MG, 1 IN 1 D, PO 5 MG, DAILY, PO
     Route: 048
     Dates: start: 20080101, end: 20080501

REACTIONS (2)
  - BOWEL MOVEMENT IRREGULARITY [None]
  - ABDOMINAL DISCOMFORT [None]
